FAERS Safety Report 14913965 (Version 1)
Quarter: 2018Q2

REPORT INFORMATION
  Report Type: Spontaneous
  Country: US (occurrence: US)
  Receive Date: 20180501
  Receipt Date: 20180501
  Transmission Date: 20180711
  Serious: No
  Sender: FDA-Public Use
  Company Number: None

PATIENT
  Age: 65 Year
  Sex: Female
  Weight: 97.52 kg

DRUGS (1)
  1. CONTRAVE [Suspect]
     Active Substance: BUPROPION HYDROCHLORIDE\NALTREXONE HYDROCHLORIDE
     Indication: APPETITE DISORDER
     Dosage: ?          QUANTITY:1 DF DOSAGE FORM;OTHER FREQUENCY:ONCE IN MORNING;?
     Route: 048
     Dates: start: 20180417, end: 20180417

REACTIONS (4)
  - Tremor [None]
  - Malaise [None]
  - Vomiting [None]
  - Dizziness [None]

NARRATIVE: CASE EVENT DATE: 20180417
